FAERS Safety Report 5151896-X (Version None)
Quarter: 2006Q4

REPORT INFORMATION
  Report Type: 
  Country: None (occurrence: None)
  Receive Date: 20061108
  Receipt Date: 20061031
  Transmission Date: 20070319
  Serious: Yes (Death, Hospitalization)
  Sender: FDA-Public Use
  Company Number: HQWYE658205OCT06

PATIENT
  Age: 69 Year
  Sex: Male

DRUGS (9)
  1. CORDARONE [Suspect]
     Indication: ARRHYTHMIA
     Dosage: 200 MG 1X PER 1 DAY ORAL
     Route: 048
     Dates: start: 20010405, end: 20060119
  2. CARDIRENE (ACETYLSALICYLATE LYSINE) [Concomitant]
  3. NITRO-DUR [Concomitant]
  4. CARVEDILOL [Concomitant]
  5. OMEPRAZOLE [Concomitant]
  6. DIAMICRON (GLICLAZIDE) [Concomitant]
  7. TORVAST (ATORVASTATIN CALCIUM) [Concomitant]
  8. RAMIPRIL [Concomitant]
  9. CARVASIN (ISOSORBIDE DINITRATE) [Concomitant]

REACTIONS (6)
  - ALVEOLITIS FIBROSING [None]
  - BRONCHITIS [None]
  - BRONCHOALVEOLAR LAVAGE ABNORMAL [None]
  - CARDIAC FAILURE [None]
  - MACROPHAGES INCREASED [None]
  - RESPIRATORY FAILURE [None]
